FAERS Safety Report 10371961 (Version 4)
Quarter: 2014Q4

REPORT INFORMATION
  Report Type: Spontaneous
  Country: US (occurrence: US)
  Receive Date: 20140808
  Receipt Date: 20141008
  Transmission Date: 20150528
  Serious: Yes (Other)
  Sender: FDA-Public Use
  Company Number: US-PFIZER INC-2014212721

PATIENT
  Age: 67 Year
  Sex: Female
  Weight: 63.5 kg

DRUGS (7)
  1. ZANTAC [Concomitant]
     Active Substance: RANITIDINE HYDROCHLORIDE
     Dosage: UNK
  2. IBUPROFEN. [Concomitant]
     Active Substance: IBUPROFEN
     Indication: HEADACHE
     Dosage: UNK, AS NEEDED
  3. METOPROLOL [Concomitant]
     Active Substance: METOPROLOL
     Dosage: UNK
  4. SUTENT [Suspect]
     Active Substance: SUNITINIB MALATE
     Indication: METASTATIC RENAL CELL CARCINOMA
     Dosage: 50 MG, 1X/DAY (4WEEKS ON TREATMENT FOLLOWED BY 2 WEEKS OFF)
     Route: 048
     Dates: start: 20140730, end: 20140813
  5. SUTENT [Suspect]
     Active Substance: SUNITINIB MALATE
     Dosage: 37.5 MG DAILY, CYCLIC
     Route: 048
     Dates: start: 20140904, end: 20141001
  6. BABY ASPIRIN [Concomitant]
     Active Substance: ASPIRIN
     Dosage: UNK
  7. ASPIRIN. [Concomitant]
     Active Substance: ASPIRIN
     Dosage: 81 MG, DAILY

REACTIONS (13)
  - Platelet count decreased [Unknown]
  - Tongue discolouration [Unknown]
  - Feeling hot [Unknown]
  - Oral pain [Unknown]
  - Dysgeusia [Not Recovered/Not Resolved]
  - Disease progression [Unknown]
  - Metastatic renal cell carcinoma [Unknown]
  - Palmar-plantar erythrodysaesthesia syndrome [Unknown]
  - Oedema peripheral [Unknown]
  - Oral disorder [Unknown]
  - Nausea [Unknown]
  - Abdominal distension [Unknown]
  - Decreased appetite [Not Recovered/Not Resolved]

NARRATIVE: CASE EVENT DATE: 2014
